FAERS Safety Report 19983508 (Version 5)
Quarter: 2021Q4

REPORT INFORMATION
  Report Type: Spontaneous
  Country: GB (occurrence: GB)
  Receive Date: 20211021
  Receipt Date: 20211201
  Transmission Date: 20220303
  Serious: Yes (Life-Threatening, Other)
  Sender: FDA-Public Use
  Company Number: None

PATIENT
  Age: 78 Year
  Sex: Male

DRUGS (4)
  1. SILDENAFIL [Interacting]
     Active Substance: SILDENAFIL
     Indication: Ill-defined disorder
     Dosage: UNK
  2. SILDENAFIL [Interacting]
     Active Substance: SILDENAFIL
     Dosage: 50 MILLIGRAM
     Dates: start: 20210712
  3. TIMOLOL [Interacting]
     Active Substance: TIMOLOL
     Indication: Product used for unknown indication
     Dosage: 0.25 PERCENT
     Route: 050
     Dates: start: 20210713
  4. APRACLONIDINE [Suspect]
     Active Substance: APRACLONIDINE HYDROCHLORIDE
     Indication: Product used for unknown indication
     Dosage: 5MG/ML
     Route: 050
     Dates: start: 20210713

REACTIONS (2)
  - Cardiac arrest [Recovered/Resolved]
  - Drug interaction [Recovered/Resolved]

NARRATIVE: CASE EVENT DATE: 20210712
